FAERS Safety Report 5467071-5 (Version None)
Quarter: 2007Q3

REPORT INFORMATION
  Report Type: 
  Country: None (occurrence: None)
  Receive Date: 20070921
  Receipt Date: 20070921
  Transmission Date: 20080115
  Serious: No
  Sender: FDA-Public Use
  Company Number: None

PATIENT
  Sex: Male
  Weight: 70.9 kg

DRUGS (1)
  1. TEMOZOLOMIDE [Suspect]
     Dosage: 3990 MG

REACTIONS (1)
  - DRUG TOXICITY [None]
